FAERS Safety Report 19567669 (Version 1)
Quarter: 2021Q3

REPORT INFORMATION
  Report Type: Spontaneous
  Country: GB (occurrence: GB)
  Receive Date: 20210714
  Receipt Date: 20210714
  Transmission Date: 20211014
  Serious: Yes (Hospitalization, Other)
  Sender: FDA-Public Use
  Company Number: GB-TEVA-2021-GB-1932036

PATIENT
  Age: 24 Year
  Sex: Male

DRUGS (14)
  1. SODIUM VALPROATE [Concomitant]
     Active Substance: VALPROATE SODIUM
     Dosage: 25 MILLIMOL DAILY; (25 MILLIMOLE, PM)
     Route: 065
  2. CLONAZEPAM. [Concomitant]
     Active Substance: CLONAZEPAM
     Indication: PRODUCT USED FOR UNKNOWN INDICATION
     Dosage: 2.5 ML DAILY;
     Route: 048
  3. LITHIUM CITRATE. [Concomitant]
     Active Substance: LITHIUM CITRATE
     Indication: PRODUCT USED FOR UNKNOWN INDICATION
     Dosage: 15 ML DAILY; PM, 15ML (600MG) NOCTE
     Route: 005
  4. QUETIAPINE. [Concomitant]
     Active Substance: QUETIAPINE
     Dosage: 10 ML DAILY; AM,QD
     Route: 065
  5. CLOZARIL [Suspect]
     Active Substance: CLOZAPINE
     Indication: SCHIZOPHRENIA
     Route: 048
     Dates: start: 20191120, end: 20191202
  6. CLOZARIL [Suspect]
     Active Substance: CLOZAPINE
     Route: 048
     Dates: start: 20181212, end: 20181231
  7. SODIUM VALPROATE [Concomitant]
     Active Substance: VALPROATE SODIUM
     Dosage: 18.75 ML DAILY; (AM)
     Route: 065
  8. SODIUM VALPROATE [Concomitant]
     Active Substance: VALPROATE SODIUM
     Dosage: 1 DOSAGE FORMS DAILY;  AM
     Route: 065
  9. SODIUM VALPROATE [Concomitant]
     Active Substance: VALPROATE SODIUM
     Indication: PRODUCT USED FOR UNKNOWN INDICATION
     Dosage: 1 DOSAGE FORMS DAILY;  PM
     Route: 065
  10. SODIUM VALPROATE [Concomitant]
     Active Substance: VALPROATE SODIUM
     Dosage: 18.75 MILLIMOL DAILY;
     Route: 065
  11. CLOZARIL [Suspect]
     Active Substance: CLOZAPINE
     Route: 048
     Dates: start: 20181115
  12. CLONAZEPAM. [Concomitant]
     Active Substance: CLONAZEPAM
     Dosage: 2.5 MILLILITER, EVER 4 DAYS (Q4D)
     Route: 065
  13. QUETIAPINE. [Concomitant]
     Active Substance: QUETIAPINE
     Indication: PRODUCT USED FOR UNKNOWN INDICATION
     Dosage: 20 MILLIMOL DAILY;  PM)
     Route: 065
  14. OLANZAPINE. [Suspect]
     Active Substance: OLANZAPINE
     Indication: PRODUCT USED FOR UNKNOWN INDICATION
     Route: 065
     Dates: start: 201811

REACTIONS (9)
  - White blood cell count decreased [Recovered/Resolved]
  - Neutrophil count increased [Recovered/Resolved]
  - Eosinophilia [Recovered/Resolved]
  - Abnormal behaviour [Unknown]
  - White blood cell count increased [Recovered/Resolved]
  - Aggression [Unknown]
  - Neutropenia [Recovered/Resolved]
  - Malaise [Unknown]
  - Drug ineffective [Unknown]

NARRATIVE: CASE EVENT DATE: 201811
